FAERS Safety Report 5916514-9 (Version None)
Quarter: 2008Q4

REPORT INFORMATION
  Report Type: 
  Country: None (occurrence: None)
  Receive Date: 20081013
  Receipt Date: 20081003
  Transmission Date: 20090506
  Serious: Yes (Hospitalization)
  Sender: FDA-Public Use
  Company Number: A0751458A

PATIENT
  Age: 44 Year
  Sex: Male
  Weight: 143.2 kg

DRUGS (1)
  1. AVANDIA [Suspect]
     Dosage: 8MG PER DAY
     Route: 048
     Dates: start: 20000301, end: 20060801

REACTIONS (7)
  - ARTERIAL INJURY [None]
  - ASTHENIA [None]
  - BRAIN INJURY [None]
  - DECREASED ACTIVITY [None]
  - GENERAL PHYSICAL HEALTH DETERIORATION [None]
  - HYPERTENSION [None]
  - ISCHAEMIC CEREBRAL INFARCTION [None]
